FAERS Safety Report 23422362 (Version 2)
Quarter: 2024Q1

REPORT INFORMATION
  Report Type: Report from Study
  Country: US (occurrence: US)
  Receive Date: 20240119
  Receipt Date: 20240122
  Transmission Date: 20240409
  Serious: Yes (Hospitalization, Other)
  Sender: FDA-Public Use
  Company Number: US-002147023-NVSC2023US147704

PATIENT
  Sex: Female
  Weight: 40.816 kg

DRUGS (4)
  1. TREPROSTINIL [Suspect]
     Active Substance: TREPROSTINIL
     Dosage: 181 NG/KG/MIN, CONT
     Route: 042
  2. TREPROSTINIL [Suspect]
     Active Substance: TREPROSTINIL
     Indication: Pulmonary arterial hypertension
     Dosage: 181 NG/KG/MIN, CONT
     Route: 042
     Dates: start: 20230517
  3. TREPROSTINIL [Suspect]
     Active Substance: TREPROSTINIL
     Dosage: 256 NG/KG/MIN
     Route: 042
     Dates: start: 20230517
  4. TREPROSTINIL [Suspect]
     Active Substance: TREPROSTINIL
     Dosage: 256 NG/KG/MIN
     Route: 042
     Dates: start: 20230517

REACTIONS (5)
  - Fluid retention [Unknown]
  - Ulcer haemorrhage [Unknown]
  - Gastrointestinal haemorrhage [Unknown]
  - Nausea [Unknown]
  - Vomiting [Unknown]
